FAERS Safety Report 23989764 (Version 1)
Quarter: 2024Q2

REPORT INFORMATION
  Report Type: Report from Study
  Country: BR (occurrence: BR)
  Receive Date: 20240619
  Receipt Date: 20240619
  Transmission Date: 20240716
  Serious: Yes (Other)
  Sender: FDA-Public Use
  Company Number: BR-002147023-NVSC2023BR135095

PATIENT
  Age: 37 Year
  Sex: Female

DRUGS (3)
  1. KESIMPTA [Suspect]
     Active Substance: OFATUMUMAB
     Indication: Multiple sclerosis
     Dosage: UNK
     Route: 065
  2. KESIMPTA [Suspect]
     Active Substance: OFATUMUMAB
     Dosage: UNK, QMO (EVERY 28 DAYS) (ABOUT A YEAR AGO (COULDN^T CONFIRM THE EXACT DATE)
     Route: 065
  3. KESIMPTA [Suspect]
     Active Substance: OFATUMUMAB
     Dosage: 20 MG (INJECTION CONTAINS 1 FILLED PEN IN TRANSPARENT PLASTIC X 0.4 ML)
     Route: 065
     Dates: start: 2022

REACTIONS (8)
  - Pneumonia [Recovered/Resolved]
  - Cough [Unknown]
  - H3N2 influenza [Unknown]
  - Decreased immune responsiveness [Recovered/Resolved]
  - Diastasis recti abdominis [Unknown]
  - Paraesthesia [Recovered/Resolved]
  - Urinary tract infection [Recovered/Resolved]
  - Nasopharyngitis [Recovered/Resolved]

NARRATIVE: CASE EVENT DATE: 20230101
